FAERS Safety Report 8236237-3 (Version None)
Quarter: 2012Q1

REPORT INFORMATION
  Report Type: 
  Country: None (occurrence: None)
  Receive Date: 20120327
  Receipt Date: 20120313
  Transmission Date: 20120608
  Serious: Yes (Hospitalization)
  Sender: FDA-Public Use
  Company Number: CHPA2012US002972

PATIENT
  Age: 73 Year
  Sex: Female

DRUGS (1)
  1. GAS-X PREVENTION [Suspect]
     Indication: FLATULENCE
     Dosage: 1 DF, ONCE/SINGLE
     Route: 048
     Dates: start: 20111110, end: 20111110

REACTIONS (8)
  - ELECTROCARDIOGRAM ABNORMAL [None]
  - BLOOD PRESSURE INCREASED [None]
  - ERYTHEMA [None]
  - ANXIETY [None]
  - FLUSHING [None]
  - MALAISE [None]
  - PALPITATIONS [None]
  - BLADDER SPASM [None]
